FAERS Safety Report 9207531 (Version 2)
Quarter: 2013Q2

REPORT INFORMATION
  Report Type: Spontaneous
  Country: US (occurrence: US)
  Receive Date: 20130403
  Receipt Date: 20130508
  Transmission Date: 20140414
  Serious: Yes (Hospitalization)
  Sender: FDA-Public Use
  Company Number: US-BAYER-2013-039882

PATIENT
  Age: 39 Year
  Sex: Female

DRUGS (3)
  1. YAZ [Suspect]
     Indication: ACNE
     Dosage: UNK
     Dates: start: 200807
  2. LORTAB [Concomitant]
     Route: 048
  3. HYDROCODONE [Concomitant]

REACTIONS (7)
  - Pulmonary embolism [None]
  - Pain [None]
  - Injury [None]
  - Emotional distress [None]
  - Fear [None]
  - Anxiety [None]
  - Pain [None]
